FAERS Safety Report 5504572-5 (Version None)
Quarter: 2007Q4

REPORT INFORMATION
  Report Type: 
  Country: None (occurrence: None)
  Receive Date: 20071031
  Receipt Date: 20071017
  Transmission Date: 20080405
  Serious: Yes (Life-Threatening, Hospitalization)
  Sender: FDA-Public Use
  Company Number: DSA_30787_2007

PATIENT
  Sex: Male

DRUGS (4)
  1. LORAZEPAM [Suspect]
     Dosage: NOT THE PRESCRIBED AMOUNT, ORAL
     Route: 048
     Dates: start: 20071016, end: 20071016
  2. ETHANOL (ALCOHOL - ETHANOL) [Suspect]
     Dosage: NOT THE PRESCRIBED AMOUNT, ORAL
     Route: 048
     Dates: start: 20071016, end: 20071016
  3. CIPRALEX /01588501/ (CIPRALEX - ESCITALOPRAM) [Suspect]
     Dosage: NOT THE PRESCRIBED AMOUNT, ORAL
     Route: 048
     Dates: start: 20071016, end: 20071016
  4. RISPERDAL [Suspect]
     Dosage: NOT THE PRESCRIBED AMOUNT, ORAL
     Route: 048
     Dates: start: 20071016

REACTIONS (4)
  - INTENTIONAL OVERDOSE [None]
  - MYDRIASIS [None]
  - SOMNOLENCE [None]
  - SUICIDE ATTEMPT [None]
